FAERS Safety Report 22106602 (Version 1)
Quarter: 2023Q1

REPORT INFORMATION
  Report Type: Spontaneous
  Country: BR (occurrence: BR)
  Receive Date: 20230317
  Receipt Date: 20230317
  Transmission Date: 20230418
  Serious: Yes (Hospitalization, Other)
  Sender: FDA-Public Use
  Company Number: BR-SA-SAC20230221001054

PATIENT
  Age: 74 Year
  Sex: Male
  Weight: 104 kg

DRUGS (9)
  1. LANTUS [Suspect]
     Active Substance: INSULIN GLARGINE
     Indication: Type 2 diabetes mellitus
     Dosage: 41 IU, QD
     Route: 058
     Dates: start: 2022
  2. LANTUS [Suspect]
     Active Substance: INSULIN GLARGINE
     Dosage: 42 IU, QD
     Route: 058
  3. WARFARIN SODIUM [Concomitant]
     Active Substance: WARFARIN SODIUM
     Indication: Anticoagulant therapy
     Dosage: 1.5 DF, QD
     Route: 048
  4. DOXAZOSIN [Concomitant]
     Active Substance: DOXAZOSIN MESYLATE
     Indication: Prostatic disorder
     Dosage: 1 DF, QD
     Route: 048
  5. GLIFAGE [METFORMIN] [Concomitant]
     Indication: Type 2 diabetes mellitus
     Dosage: UNK, TID
     Route: 048
     Dates: start: 202301
  6. METOPROLOL SUCCINATE [Concomitant]
     Active Substance: METOPROLOL SUCCINATE
     Dosage: 1 DF BID
  7. PREGABALIN [Concomitant]
     Active Substance: PREGABALIN
     Indication: Neuropathy peripheral
     Dosage: UNK
  8. SIMVASTATIN [Concomitant]
     Active Substance: SIMVASTATIN
     Dosage: 1 DF QD
  9. LOSARTAN [Concomitant]
     Active Substance: LOSARTAN
     Dosage: 1 DF, BID (1 TABLET IN THE MORNING AND AT NIGHT)

REACTIONS (7)
  - Diabetic metabolic decompensation [Not Recovered/Not Resolved]
  - Blood glucose increased [Not Recovered/Not Resolved]
  - Drug ineffective [Not Recovered/Not Resolved]
  - Arrhythmia [Unknown]
  - Dyspnoea [Unknown]
  - Pallor [Unknown]
  - Cold sweat [Unknown]

NARRATIVE: CASE EVENT DATE: 20230225
